FAERS Safety Report 6197256-4 (Version None)
Quarter: 2009Q2

REPORT INFORMATION
  Report Type: 
  Country: None (occurrence: None)
  Receive Date: 20090521
  Receipt Date: 20090512
  Transmission Date: 20091009
  Serious: Yes (Hospitalization)
  Sender: FDA-Public Use
  Company Number: JP-ELI_LILLY_AND_COMPANY-JP200904002325

PATIENT
  Sex: Male
  Weight: 56.7 kg

DRUGS (7)
  1. GEMCITABINE HCL [Suspect]
     Indication: PANCREATIC CARCINOMA NON-RESECTABLE
     Dosage: 1500 MG, OTHER
     Route: 042
     Dates: start: 20090325, end: 20090402
  2. TS 1 (DRUG CODE 015935.01.001) [Suspect]
     Indication: PANCREATIC CARCINOMA NON-RESECTABLE
     Dosage: 50 MG, 2/D
     Route: 048
     Dates: start: 20090325, end: 20090406
  3. DEXART [Concomitant]
     Indication: PROPHYLAXIS
     Dosage: 4 MG, UNK
     Route: 042
     Dates: start: 20081212
  4. CELESTAMINE [Concomitant]
     Indication: RASH
     Dosage: UNK, 3/D
     Route: 048
     Dates: start: 20090331
  5. ALLEGRA [Concomitant]
     Indication: RASH
     Dosage: 30 MG, 2/D
     Route: 048
     Dates: start: 20090331
  6. RINDERON -V [Concomitant]
     Indication: RASH
     Dosage: UNK, 2/D
     Route: 062
     Dates: start: 20090331
  7. POLARAMINE /00072502/ [Concomitant]
     Indication: RASH
     Dates: start: 20090415

REACTIONS (2)
  - PHARYNGEAL INFLAMMATION [None]
  - STOMATITIS [None]
